FAERS Safety Report 8086357-1 (Version None)
Quarter: 2012Q1

REPORT INFORMATION
  Report Type: 
  Country: None (occurrence: None)
  Receive Date: 20120128
  Receipt Date: 20110510
  Transmission Date: 20120608
  Serious: No
  Sender: FDA-Public Use
  Company Number: US-ABBOTT-11P-163-0724655-00

PATIENT
  Age: 54 Year
  Sex: Female

DRUGS (14)
  1. HUMIRA [Suspect]
     Indication: RHEUMATOID ARTHRITIS
     Dates: start: 20080101
  2. FOLIC ACID [Concomitant]
     Indication: VITAMIN SUPPLEMENTATION
  3. PREDNISONE TAB [Concomitant]
     Indication: ARTHRALGIA
  4. VITAMIN B-12 [Concomitant]
     Indication: VITAMIN SUPPLEMENTATION
  5. CLONAZEPAM [Concomitant]
     Indication: ANXIETY
     Dosage: 1 - 2 TABS DAILY
  6. PROMETHAZINE [Concomitant]
     Indication: ANXIETY
  7. TYLENOL WITH CODEIN #3 [Concomitant]
     Indication: ARTHRALGIA
  8. METHOTREXATE [Concomitant]
     Indication: RHEUMATOID ARTHRITIS
  9. VITAMIN D WITH CALCIUM [Concomitant]
     Indication: VITAMIN SUPPLEMENTATION
  10. ZANTAC [Concomitant]
     Indication: GASTROOESOPHAGEAL REFLUX DISEASE
  11. HYDROCHLOROTHIAZIDE [Concomitant]
     Indication: HYPERTENSION
  12. MULTI-VITAMIN [Concomitant]
     Indication: PRODUCT USED FOR UNKNOWN INDICATION
  13. CRESTOR [Concomitant]
     Indication: BLOOD CHOLESTEROL INCREASED
  14. PROMETHAZINE [Concomitant]
     Indication: RHEUMATOID ARTHRITIS

REACTIONS (1)
  - NASOPHARYNGITIS [None]
